FAERS Safety Report 5516401-4 (Version None)
Quarter: 2007Q4

REPORT INFORMATION
  Report Type: 
  Country: None (occurrence: None)
  Receive Date: 20071114
  Receipt Date: 20070216
  Transmission Date: 20080405
  Serious: No
  Sender: FDA-Public Use
  Company Number: A0639694A

PATIENT
  Age: 79 Year
  Sex: Female

DRUGS (2)
  1. COMMIT [Suspect]
     Dates: start: 20070213, end: 20070213
  2. CADUET [Concomitant]

REACTIONS (4)
  - DIZZINESS [None]
  - HICCUPS [None]
  - NAUSEA [None]
  - VISION BLURRED [None]
